FAERS Safety Report 21405669 (Version 2)
Quarter: 2022Q4

REPORT INFORMATION
  Report Type: Report from Study
  Country: US (occurrence: US)
  Receive Date: 20221004
  Receipt Date: 20221121
  Transmission Date: 20230112
  Serious: Yes (Other)
  Sender: FDA-Public Use
  Company Number: US-ABBVIE-22K-163-4391779-00

PATIENT
  Sex: Female

DRUGS (3)
  1. HUMIRA [Suspect]
     Active Substance: ADALIMUMAB
     Indication: Rheumatoid arthritis
     Dosage: CITRATE FREE FORM STRENGTH- 40 MG
     Route: 058
  2. PFIZER-BIONTECH COVID-19 VACCINE [Suspect]
     Active Substance: TOZINAMERAN
     Indication: COVID-19 immunisation
     Dosage: FIRST DOSE, ONCE
     Route: 030
  3. PFIZER-BIONTECH COVID-19 VACCINE [Suspect]
     Active Substance: TOZINAMERAN
     Indication: COVID-19 immunisation
     Dosage: BOOSTER DOSE, ONCE
     Route: 030

REACTIONS (6)
  - Sinus operation [Recovered/Resolved]
  - Arthralgia [Unknown]
  - Paranasal sinus haemorrhage [Unknown]
  - Fungal infection [Recovering/Resolving]
  - Swelling [Unknown]
  - Pain [Unknown]
